FAERS Safety Report 4768189-2 (Version None)
Quarter: 2005Q3

REPORT INFORMATION
  Report Type: 
  Country: None (occurrence: None)
  Receive Date: 20050912
  Receipt Date: 20050912
  Transmission Date: 20060218
  Serious: Yes (Hospitalization, Other)
  Sender: FDA-Public Use
  Company Number: None

PATIENT
  Sex: Female
  Weight: 64.4108 kg

DRUGS (4)
  1. AVASTIN [Suspect]
     Dosage: 300 MG QD WK IV
     Route: 042
  2. LISINOPRIL [Concomitant]
  3. MEGACE [Concomitant]
  4. COUMADIN [Concomitant]

REACTIONS (2)
  - PERIPHERAL ISCHAEMIA [None]
  - THROMBECTOMY [None]
